FAERS Safety Report 8258431-8 (Version None)
Quarter: 2012Q2

REPORT INFORMATION
  Report Type: 
  Country: None (occurrence: None)
  Receive Date: 20120404
  Receipt Date: 20120328
  Transmission Date: 20120825
  Serious: Yes (Death)
  Sender: FDA-Public Use
  Company Number: US-CELGENEUS-163-21880-12020504

PATIENT
  Sex: Male
  Weight: 79.45 kg

DRUGS (16)
  1. GLIMEPIRIDE [Concomitant]
     Dosage: 1 MILLIGRAM
     Route: 065
  2. POTASSIUM [Concomitant]
     Dosage: 10 MILLIEQUIVALENTS
     Route: 065
  3. FOLIC ACID [Concomitant]
     Indication: SUPPLEMENTATION THERAPY
     Dosage: 1 MILLIGRAM
     Route: 065
  4. PRAVASTATIN [Concomitant]
     Dosage: 80 MILLIGRAM
     Route: 065
  5. PREDNISONE TAB [Concomitant]
     Dosage: 20 MILLIGRAM
     Route: 065
  6. REVLIMID [Suspect]
     Indication: MYELOFIBROSIS
     Dosage: 10 MILLIGRAM
     Route: 048
     Dates: start: 20111226, end: 20120115
  7. VITAMIN D [Concomitant]
     Indication: SUPPLEMENTATION THERAPY
     Dosage: 50,000 UNITS
     Route: 065
  8. LASIX [Concomitant]
     Dosage: 20 MILLIGRAM
     Route: 065
  9. FLOMAX [Concomitant]
     Dosage: .4 MILLIGRAM
     Route: 065
  10. AMLODIPINE [Concomitant]
     Dosage: 2.5 MILLIGRAM
     Route: 065
  11. ASPIRIN [Concomitant]
     Dosage: 325 MILLIGRAM
     Route: 065
  12. BENAZEPRIL HYDROCHLORIDE [Concomitant]
     Dosage: 20 MILLIGRAM
     Route: 065
  13. FINASTERIDE [Concomitant]
     Dosage: 5 MILLIGRAM
     Route: 065
  14. PRILOSEC [Concomitant]
     Dosage: 20 MILLIGRAM
     Route: 065
  15. SYNTHROID [Concomitant]
     Indication: HYPOTHYROIDISM
     Dosage: 100 MICROGRAM
     Route: 065
  16. METOPROLOL SUCCINATE [Concomitant]
     Dosage: 75 MILLIGRAM
     Route: 065

REACTIONS (1)
  - LUNG NEOPLASM MALIGNANT [None]
